FAERS Safety Report 8126594-0 (Version None)
Quarter: 2012Q1

REPORT INFORMATION
  Report Type: 
  Country: None (occurrence: None)
  Receive Date: 20120210
  Receipt Date: 20120131
  Transmission Date: 20120608
  Serious: Yes (Hospitalization)
  Sender: FDA-Public Use
  Company Number: US-BIOGENIDEC-2012BI004156

PATIENT
  Age: 33 Year
  Sex: Female

DRUGS (2)
  1. TYSABRI [Suspect]
     Indication: MULTIPLE SCLEROSIS
     Route: 042
     Dates: start: 20080211, end: 20110411
  2. TYSABRI [Suspect]
     Route: 042
     Dates: start: 20120105

REACTIONS (2)
  - UPPER LIMB FRACTURE [None]
  - ANKLE FRACTURE [None]
